FAERS Safety Report 7998296-2 (Version None)
Quarter: 2011Q4

REPORT INFORMATION
  Report Type: 
  Country: None (occurrence: None)
  Receive Date: 20111221
  Receipt Date: 20110623
  Transmission Date: 20120403
  Serious: No
  Sender: FDA-Public Use
  Company Number: US-GLAXOSMITHKLINE-A0932729A

PATIENT
  Age: 61 Year
  Sex: Female

DRUGS (5)
  1. CALAN [Concomitant]
  2. CELEBREX [Concomitant]
  3. LOVAZA [Suspect]
     Indication: BLOOD TRIGLYCERIDES INCREASED
     Dosage: 2G TWICE PER DAY
     Route: 048
     Dates: start: 20110201
  4. ZOVIRAX [Suspect]
     Indication: HERPES ZOSTER
     Dosage: 200MG THREE TIMES PER DAY
     Route: 048
     Dates: start: 20110506, end: 20110513
  5. ASPIRIN [Concomitant]

REACTIONS (4)
  - PARAESTHESIA [None]
  - ILL-DEFINED DISORDER [None]
  - BLISTER [None]
  - WEIGHT INCREASED [None]
